FAERS Safety Report 4506261-2 (Version None)
Quarter: 2004Q4

REPORT INFORMATION
  Report Type: 
  Country: None (occurrence: None)
  Receive Date: 20041119
  Receipt Date: 20041110
  Transmission Date: 20050328
  Serious: Yes (Death)
  Sender: FDA-Public Use
  Company Number: US-MERCK-0411USA02061

PATIENT
  Age: 60 Year
  Sex: Female

DRUGS (2)
  1. VIOXX [Suspect]
     Indication: ARTHROPATHY
     Route: 065
  2. VIOXX [Suspect]
     Indication: KNEE ARTHROPLASTY
     Route: 065

REACTIONS (2)
  - DEATH [None]
  - THROMBOSIS [None]
